FAERS Safety Report 8525485-0 (Version None)
Quarter: 2012Q3

REPORT INFORMATION
  Report Type: 
  Country: None (occurrence: None)
  Receive Date: 20120720
  Receipt Date: 20120712
  Transmission Date: 20120928
  Serious: Yes (Other)
  Sender: FDA-Public Use
  Company Number: CA-JNJFOC-20120307776

PATIENT
  Sex: Female
  Weight: 70 kg

DRUGS (11)
  1. AMITRIPTYLINE HCL [Concomitant]
     Route: 065
  2. OMEPRAZOLE (PRISOLEC) [Concomitant]
     Route: 065
  3. GABAPENTIN [Concomitant]
     Route: 065
  4. LASIX [Concomitant]
     Route: 065
  5. IRON [Concomitant]
     Route: 065
  6. PREDNISONE TAB [Suspect]
     Indication: PRODUCT USED FOR UNKNOWN INDICATION
     Route: 048
  7. ASCORBIC ACID [Concomitant]
     Route: 065
  8. REMICADE [Suspect]
     Indication: RHEUMATOID ARTHRITIS
     Route: 042
     Dates: start: 20120201, end: 20120201
  9. PREDNISONE TAB [Suspect]
     Route: 048
  10. FOSAMAX [Concomitant]
     Route: 065
  11. VITAMIN D [Concomitant]
     Route: 065

REACTIONS (1)
  - DACRYOADENITIS ACQUIRED [None]
